FAERS Safety Report 12840215 (Version 3)
Quarter: 2019Q3

REPORT INFORMATION
  Report Type: Spontaneous
  Country: US (occurrence: US)
  Receive Date: 20161012
  Receipt Date: 20190829
  Transmission Date: 20191004
  Serious: Yes (Hospitalization, Other)
  Sender: FDA-Public Use
  Company Number: US-PFIZER INC-2016469622

PATIENT
  Age: 42 Year
  Sex: Male
  Weight: 95.25 kg

DRUGS (28)
  1. SUCRALFATE. [Concomitant]
     Active Substance: SUCRALFATE
     Indication: PANCREATIC DISORDER
  2. RAPAMUNE [Suspect]
     Active Substance: SIROLIMUS
     Dosage: 4 MG, 1X/DAY
     Route: 048
     Dates: end: 201907
  3. CELLCEPT [Concomitant]
     Active Substance: MYCOPHENOLATE MOFETIL\MYCOPHENOLATE MOFETIL HYDROCHLORIDE
     Dosage: 250 MG, 2X/DAY [EVERY 12 HOURS OF CELLCEPT A DAY]
  4. ESOMEPRAZOLE MAGNESIUM. [Concomitant]
     Active Substance: ESOMEPRAZOLE MAGNESIUM
     Indication: DYSPEPSIA
     Dosage: 40 MG, 2X/DAY
     Dates: start: 2012
  5. VENLAFAXINE [Concomitant]
     Active Substance: VENLAFAXINE HYDROCHLORIDE
     Indication: DEPRESSION
     Dosage: 100 MG, 2X/DAY
     Dates: start: 201606
  6. QUETIAPINE. [Concomitant]
     Active Substance: QUETIAPINE
     Indication: SLEEP DISORDER
  7. LEVOFLOXACIN. [Concomitant]
     Active Substance: LEVOFLOXACIN
     Indication: CYSTITIS
     Dosage: 500 MG, 1X/DAY
     Dates: start: 20161001
  8. HUMALOG [Concomitant]
     Active Substance: INSULIN LISPRO
     Indication: DIABETES MELLITUS
     Dosage: 10 UNITS PLUS SLIDING SCALE INJECTED SUBQ AT MEAL TIME
     Dates: start: 2013
  9. OXYBUTYNIN. [Concomitant]
     Active Substance: OXYBUTYNIN CHLORIDE
     Indication: BLADDER SPASM
     Dosage: 5MG, EVERY 12 HOURS
     Dates: start: 2012
  10. ZETIA [Concomitant]
     Active Substance: EZETIMIBE
     Indication: BLOOD CHOLESTEROL ABNORMAL
     Dosage: 10 MG, 1X/DAY
     Dates: start: 2015
  11. URSODIOL. [Concomitant]
     Active Substance: URSODIOL
     Indication: PANCREATIC DISORDER
  12. BUSPIRONE [Concomitant]
     Active Substance: BUSPIRONE HYDROCHLORIDE
     Indication: ANXIETY
     Dosage: 15 MG, 2X/DAY
     Dates: start: 201606
  13. SUCRALFATE. [Concomitant]
     Active Substance: SUCRALFATE
     Indication: GASTRIC ULCER
     Dosage: 1 G, 4X/DAY
  14. LYRICA [Concomitant]
     Active Substance: PREGABALIN
     Indication: DIABETIC NEUROPATHY
     Dosage: 100 MG, 3X/DAY
     Dates: start: 201511
  15. METOPROLOL TARTRATE. [Concomitant]
     Active Substance: METOPROLOL TARTRATE
     Indication: CARDIAC DISORDER
     Dosage: 100 MG, 2X/DAY
  16. PROMETHAZINE [Concomitant]
     Active Substance: PROMETHAZINE HYDROCHLORIDE
     Indication: NAUSEA
     Dosage: 25MG ONCE A DAY OR EVERY 6 HOURS AS NEEDED
     Dates: start: 2001
  17. RAPAMUNE [Suspect]
     Active Substance: SIROLIMUS
     Dosage: 4 MG, 1X/DAY
     Route: 048
  18. CELLCEPT [Concomitant]
     Active Substance: MYCOPHENOLATE MOFETIL\MYCOPHENOLATE MOFETIL HYDROCHLORIDE
     Indication: IMMUNOSUPPRESSION
     Dosage: 750 MG, 2X/DAY
     Dates: start: 2002
  19. FENOFIBRATE. [Concomitant]
     Active Substance: FENOFIBRATE
     Indication: BLOOD CHOLESTEROL ABNORMAL
     Dosage: 145 MG, 1X/DAY
     Dates: start: 2004
  20. MECLIZINE [Concomitant]
     Active Substance: MECLIZINE HYDROCHLORIDE
     Indication: DIZZINESS
     Dosage: 25MG THREE TIMES A DAY AS NEEDED
     Dates: start: 201601
  21. QUETIAPINE. [Concomitant]
     Active Substance: QUETIAPINE
     Indication: INSOMNIA
     Dosage: 50 MG, 1X/DAY AT BEDTIME
     Dates: start: 201606
  22. CELLCEPT [Concomitant]
     Active Substance: MYCOPHENOLATE MOFETIL\MYCOPHENOLATE MOFETIL HYDROCHLORIDE
     Dosage: 1000 MG, 2X/DAY [EVERY 12 HOURS OF CELLCEPT A DAY]
  23. LANTUS [Concomitant]
     Active Substance: INSULIN GLARGINE
     Indication: DIABETES MELLITUS
     Dosage: 45 UNITS INJECTED SUBQ AT BEDTIME
     Dates: start: 2013
  24. RAPAMUNE [Suspect]
     Active Substance: SIROLIMUS
     Indication: RENAL TRANSPLANT
     Dosage: 2 MG, 1X/DAY
     Route: 048
     Dates: start: 2016
  25. FEXOFENADINE [Concomitant]
     Active Substance: FEXOFENADINE HYDROCHLORIDE
     Indication: HYPERSENSITIVITY
     Dosage: 180 MG, 1X/DAY
     Dates: start: 2016
  26. BACLOFEN. [Concomitant]
     Active Substance: BACLOFEN
     Indication: MUSCLE SPASMS
     Dosage: 10 MG, 3X/DAY
     Route: 048
     Dates: start: 201602
  27. EFFIENT [Concomitant]
     Active Substance: PRASUGREL HYDROCHLORIDE
     Indication: CORONARY ARTERIAL STENT INSERTION
     Dosage: 10 MG, 1X/DAY
  28. URSODIOL. [Concomitant]
     Active Substance: URSODIOL
     Indication: GASTRIC ULCER
     Dosage: 300 MG, 2X/DAY
     Dates: start: 2015

REACTIONS (4)
  - Renal mass [Unknown]
  - Haemorrhage urinary tract [Recovered/Resolved with Sequelae]
  - Renal failure [Not Recovered/Not Resolved]
  - Dysuria [Recovered/Resolved with Sequelae]

NARRATIVE: CASE EVENT DATE: 20160917
